FAERS Safety Report 6471973-0 (Version None)
Quarter: 2009Q4

REPORT INFORMATION
  Report Type: 
  Country: None (occurrence: None)
  Receive Date: 20091203
  Receipt Date: 20080617
  Transmission Date: 20100525
  Serious: Yes (Death)
  Sender: FDA-Public Use
  Company Number: GB-ELI_LILLY_AND_COMPANY-GB200804000538

PATIENT
  Sex: Male
  Weight: 75 kg

DRUGS (11)
  1. XIGRIS [Suspect]
     Indication: ABDOMINAL SEPSIS
     Dosage: UNK, UNKNOWN
     Route: 042
     Dates: start: 20080312, end: 20080313
  2. XIGRIS [Suspect]
     Dosage: UNK, UNKNOWN
     Route: 065
     Dates: start: 20080313, end: 20080314
  3. XIGRIS [Suspect]
     Dosage: UNK, UNKNOWN
     Route: 065
     Dates: start: 20080315
  4. NORADRENALINE [Concomitant]
     Dosage: UNK, UNKNOWN
     Route: 065
     Dates: start: 20080312
  5. ADRENALINE [Concomitant]
     Dosage: UNK, UNKNOWN
     Route: 065
     Dates: start: 20080312
  6. TERLIPRESSIN [Concomitant]
     Dosage: UNK, UNKNOWN
     Route: 065
     Dates: start: 20080312
  7. TAZOCIN [Concomitant]
     Dosage: UNK, UNKNOWN
     Route: 065
  8. METRONIDAZOLE [Concomitant]
     Dosage: UNK, UNKNOWN
     Route: 065
  9. MORPHINE [Concomitant]
     Indication: SEDATION
     Dosage: UNK, UNKNOWN
     Route: 065
  10. MIDAZOLAM HCL [Concomitant]
     Indication: SEDATION
     Dosage: UNK, UNKNOWN
     Route: 065
  11. OXYGEN [Concomitant]
     Dosage: UNK, UNKNOWN
     Route: 065

REACTIONS (3)
  - COAGULOPATHY [None]
  - LIVEDO RETICULARIS [None]
  - SEPSIS [None]
